FAERS Safety Report 5152193-9 (Version None)
Quarter: 2006Q4

REPORT INFORMATION
  Report Type: 
  Country: None (occurrence: None)
  Receive Date: 20061116
  Receipt Date: 20061110
  Transmission Date: 20070319
  Serious: Yes (Other)
  Sender: FDA-Public Use
  Company Number: IE-GLAXOSMITHKLINE-B0446668A

PATIENT
  Age: 78 Year
  Sex: Male

DRUGS (10)
  1. AVANDIA [Suspect]
     Indication: DIABETES MELLITUS
     Dosage: 4MG PER DAY
     Route: 048
     Dates: start: 20060922, end: 20060930
  2. DIAMICRON [Concomitant]
  3. LANOXIN [Concomitant]
  4. IKOREL [Concomitant]
  5. NITROGLYCERIN [Concomitant]
  6. EPANUTIN [Concomitant]
  7. WARFARIN SODIUM [Concomitant]
  8. LASIX [Concomitant]
  9. ASPIRIN [Concomitant]
  10. LIPITOR [Concomitant]

REACTIONS (1)
  - GLUCOSE TOLERANCE IMPAIRED [None]
